FAERS Safety Report 9928975 (Version 3)
Quarter: 2014Q2

REPORT INFORMATION
  Report Type: Spontaneous
  Country: US (occurrence: None)
  Receive Date: 20140225
  Receipt Date: 20140527
  Transmission Date: 20141212
  Serious: Yes (Hospitalization)
  Sender: FDA-Public Use
  Company Number: 2192449

PATIENT
  Age: 52 Year
  Sex: Female
  Weight: 95.7 kg

DRUGS (6)
  1. DOCETAXEL [Suspect]
     Indication: SOFT TISSUE NEOPLASM
     Dosage: (CYCLICAL)
     Route: 041
     Dates: start: 20140102, end: 20140102
  2. DOCETAXEL [Suspect]
     Dosage: (CYCLICAL)
     Route: 041
     Dates: start: 20140102, end: 20140102
  3. DOCETAXEL [Suspect]
     Indication: METASTATIC NEOPLASM
     Dosage: (CYCLICAL)
     Route: 041
     Dates: start: 20140102, end: 20140102
  4. GEMCITABINE FOR INJECTION, USP (GEMCITABINE HYDROCHLORIDE) [Suspect]
     Indication: SOFT TISSUE NEOPLASM
     Dosage: (CYCLICAL)
     Route: 041
     Dates: start: 20131226, end: 20140102
  5. GEMCITABINE FOR INJECTION, USP (GEMCITABINE HYDROCHLORIDE) [Suspect]
     Dosage: (CYCLICAL)
     Route: 041
     Dates: start: 20131226, end: 20140102
  6. INVESTIGATIONL DRUG [Concomitant]

REACTIONS (5)
  - Pneumonia [None]
  - Febrile neutropenia [None]
  - Anaemia [None]
  - Gallbladder disorder [None]
  - Platelet count decreased [None]
